FAERS Safety Report 15868664 (Version 4)
Quarter: 2022Q1

REPORT INFORMATION
  Report Type: Report from Study
  Country: JP (occurrence: JP)
  Receive Date: 20190125
  Receipt Date: 20220309
  Transmission Date: 20220423
  Serious: Yes (Other)
  Sender: FDA-Public Use
  Company Number: JP-VIIV HEALTHCARE LIMITED-JP2017JPN176164

PATIENT
  Age: 56 Year
  Sex: Male

DRUGS (6)
  1. DOLUTEGRAVIR [Suspect]
     Active Substance: DOLUTEGRAVIR
     Indication: Acquired immunodeficiency syndrome
     Dosage: 50 MG, 1D
     Route: 048
     Dates: start: 20141203, end: 20170418
  2. EPZICOM [Suspect]
     Active Substance: ABACAVIR SULFATE\LAMIVUDINE
     Indication: Acquired immunodeficiency syndrome
     Dosage: 1 DF, 1D
     Route: 048
     Dates: start: 20141203, end: 20170418
  3. NORVIR [Suspect]
     Active Substance: RITONAVIR
     Dosage: 100 MG, 1D
     Route: 048
     Dates: start: 20120202, end: 20141202
  4. TRUVADA [Suspect]
     Active Substance: EMTRICITABINE\TENOFOVIR DISOPROXIL FUMARATE
     Dosage: 1 DF, 1D
     Route: 048
     Dates: start: 20120202, end: 20141202
  5. DARUNAVIR [Suspect]
     Active Substance: DARUNAVIR
     Dosage: 800 MG, QD
     Route: 048
     Dates: start: 20120202, end: 20141202
  6. TRIUMEQ [Concomitant]
     Active Substance: ABACAVIR SULFATE\DOLUTEGRAVIR SODIUM\LAMIVUDINE
     Indication: Acquired immunodeficiency syndrome
     Dosage: 1 DF, 1D
     Dates: start: 20170419

REACTIONS (2)
  - Dyslipidaemia [Not Recovered/Not Resolved]
  - Renal disorder [Not Recovered/Not Resolved]

NARRATIVE: CASE EVENT DATE: 20141217
